FAERS Safety Report 17664323 (Version 2)
Quarter: 2020Q2

REPORT INFORMATION
  Report Type: Spontaneous
  Country: US (occurrence: US)
  Receive Date: 20200414
  Receipt Date: 20200414
  Transmission Date: 20200713
  Serious: No
  Sender: FDA-Public Use
  Company Number: US-JNJFOC-20200338656

PATIENT
  Sex: Female

DRUGS (1)
  1. PEPCID AC [Suspect]
     Active Substance: FAMOTIDINE
     Indication: DYSPEPSIA
     Dosage: ONE CAPLET TWICE A DAY; A COUPLE OF WEEKS, PRODUCT STOP DATE: 23-MAR-2020
     Route: 048

REACTIONS (1)
  - Drug ineffective [Unknown]
